FAERS Safety Report 6871045-7 (Version None)
Quarter: 2010Q3

REPORT INFORMATION
  Report Type: 
  Country: None (occurrence: None)
  Receive Date: 20100723
  Receipt Date: 20100712
  Transmission Date: 20110219
  Serious: Yes (Other)
  Sender: FDA-Public Use
  Company Number: US-PFIZER INC-2010025434

PATIENT
  Sex: Male
  Weight: 88 kg

DRUGS (6)
  1. SUTENT [Suspect]
     Indication: RENAL CELL CARCINOMA
     Dosage: 50 MG, 1X/DAY, X 28 DAYS EVERY 42 DAYS
     Route: 048
     Dates: start: 20100204
  2. INDOCIN [Concomitant]
     Indication: GOUT
     Dosage: UNK
  3. ALLOPURINOL [Concomitant]
     Indication: GOUT
     Dosage: UNK
  4. TOPROL-XL [Concomitant]
     Indication: HYPERTENSION
     Dosage: UNK
  5. LISINOPRIL [Concomitant]
     Indication: HYPERTENSION
     Dosage: UNK
  6. LANOXIN [Concomitant]
     Indication: HYPERTENSION
     Dosage: UNK

REACTIONS (4)
  - ARTHRALGIA [None]
  - GOUT [None]
  - HYPERTENSION [None]
  - PLATELET COUNT DECREASED [None]
